FAERS Safety Report 13179944 (Version 1)
Quarter: 2017Q1

REPORT INFORMATION
  Report Type: Spontaneous
  Country: GB (occurrence: GB)
  Receive Date: 20170202
  Receipt Date: 20170202
  Transmission Date: 20170428
  Serious: Yes (Death, Other)
  Sender: FDA-Public Use
  Company Number: GB-PFIZER INC-2017036798

PATIENT
  Age: 50 Year
  Sex: Male

DRUGS (2)
  1. DAUNORUBICIN [Suspect]
     Active Substance: DAUNORUBICIN
     Indication: ACUTE MYELOMONOCYTIC LEUKAEMIA
     Dosage: 1.5 MG/KG, UNK (ON DAY 1)
     Route: 041
  2. CYTARABINE. [Suspect]
     Active Substance: CYTARABINE
     Indication: ACUTE MYELOMONOCYTIC LEUKAEMIA
     Dosage: 2 MG/KG, DAILY
     Route: 042

REACTIONS (2)
  - Pericardial haemorrhage [Fatal]
  - Thrombocytopenia [Unknown]
